FAERS Safety Report 24172769 (Version 1)
Quarter: 2024Q3

REPORT INFORMATION
  Report Type: Spontaneous
  Country: JP (occurrence: JP)
  Receive Date: 20240805
  Receipt Date: 20240805
  Transmission Date: 20241016
  Serious: Yes (Other)
  Sender: REGENERON
  Company Number: JP-BAYER-2024A111004

PATIENT
  Age: 83 Year
  Sex: Male

DRUGS (1)
  1. EYLEA HD [Suspect]
     Active Substance: AFLIBERCEPT
     Indication: Product used for unknown indication
     Dosage: 8MG, LEFT EYE, (114.3 MG/ML), SOLUTION FOR INJECTION
     Route: 031
     Dates: start: 20240627

REACTIONS (2)
  - Hemiplegia [Unknown]
  - Brain stem infarction [Unknown]

NARRATIVE: CASE EVENT DATE: 20240724
